FAERS Safety Report 5724445-2 (Version None)
Quarter: 2008Q2

REPORT INFORMATION
  Report Type: 
  Country: None (occurrence: None)
  Receive Date: 20080428
  Receipt Date: 20080418
  Transmission Date: 20081010
  Serious: Yes (Other)
  Sender: FDA-Public Use
  Company Number: CHNY2008JP01360

PATIENT
  Age: 92 Year
  Sex: Female
  Weight: 45 kg

DRUGS (2)
  1. NICOTINELL TTS (NCH)(NICOTINE) TRANS-THERAPEUTIC-SYSTEM [Suspect]
     Dosage: 14 MG, QD, TRANSDERMAL; 7 MG, QD, TRANSDERMAL
     Route: 062
     Dates: start: 20080311, end: 20080315
  2. NICOTINELL TTS (NCH)(NICOTINE) TRANS-THERAPEUTIC-SYSTEM [Suspect]
     Dosage: 14 MG, QD, TRANSDERMAL; 7 MG, QD, TRANSDERMAL
     Route: 062
     Dates: start: 20080321, end: 20080322

REACTIONS (5)
  - DECREASED APPETITE [None]
  - DIZZINESS [None]
  - FALL [None]
  - MALAISE [None]
  - SOMNOLENCE [None]
